FAERS Safety Report 18519237 (Version 2)
Quarter: 2020Q4

REPORT INFORMATION
  Report Type: Spontaneous
  Country: US (occurrence: US)
  Receive Date: 20201118
  Receipt Date: 20201223
  Transmission Date: 20210114
  Serious: No
  Sender: FDA-Public Use
  Company Number: US-PFIZER INC-2020451221

PATIENT
  Age: 56 Year
  Sex: Male

DRUGS (3)
  1. PREDNISONE. [Concomitant]
     Active Substance: PREDNISONE
     Dosage: UNK
  2. METHOTREXATE. [Concomitant]
     Active Substance: METHOTREXATE
     Dosage: UNK
  3. XELJANZ XR [Suspect]
     Active Substance: TOFACITINIB CITRATE
     Indication: RHEUMATOID ARTHRITIS
     Dosage: 11 MG, DAILY
     Route: 048
     Dates: start: 20201112, end: 202012

REACTIONS (6)
  - Condition aggravated [Unknown]
  - Chest pain [Unknown]
  - Skin exfoliation [Unknown]
  - Oropharyngeal discomfort [Unknown]
  - Obstructive airways disorder [Unknown]
  - Rash [Unknown]

NARRATIVE: CASE EVENT DATE: 202012
